FAERS Safety Report 9650189 (Version 1)
Quarter: 2013Q4

REPORT INFORMATION
  Report Type: Spontaneous
  Country: US (occurrence: US)
  Receive Date: 20131028
  Receipt Date: 20131028
  Transmission Date: 20140711
  Serious: No
  Sender: FDA-Public Use
  Company Number: US-PURDUE-USA-2013-0098155

PATIENT
  Sex: Male

DRUGS (3)
  1. OXYCONTIN (NDA 22-272) [Suspect]
     Indication: PRODUCT USED FOR UNKNOWN INDICATION
     Dosage: 160 MG, DAILY
     Route: 048
  2. OXYCODONE HYDROCHLORIDE (SIMILAR TO NDA 22-272) [Suspect]
     Indication: PRODUCT USED FOR UNKNOWN INDICATION
     Dosage: 180 MG, DAILY
     Route: 048
  3. MORPHINE SULFATE (SIMILAR TO NDA 19-516) [Suspect]
     Indication: PRODUCT USED FOR UNKNOWN INDICATION
     Dosage: 60 MG, DAILY
     Route: 048

REACTIONS (17)
  - Negative thoughts [Unknown]
  - Neck pain [Unknown]
  - Arthralgia [Unknown]
  - General physical health deterioration [Unknown]
  - Malaise [Recovered/Resolved]
  - Somnolence [Unknown]
  - Impaired work ability [Unknown]
  - Diarrhoea [Unknown]
  - Muscle spasms [Unknown]
  - Restless legs syndrome [Unknown]
  - Depression [Unknown]
  - Pain [Unknown]
  - Feeling abnormal [Unknown]
  - Sciatica [Not Recovered/Not Resolved]
  - Dizziness [Unknown]
  - Inadequate diet [Unknown]
  - Drug effect increased [Unknown]
